FAERS Safety Report 6146829-3 (Version None)
Quarter: 2009Q2

REPORT INFORMATION
  Report Type: 
  Country: None (occurrence: None)
  Receive Date: 20090407
  Receipt Date: 20090331
  Transmission Date: 20091009
  Serious: Yes (Death)
  Sender: FDA-Public Use
  Company Number: US-CELGENEUS-163-20785-09011558

PATIENT
  Sex: Male

DRUGS (2)
  1. THALOMID [Suspect]
     Indication: MULTIPLE MYELOMA
     Route: 048
     Dates: start: 20081213, end: 20090101
  2. THALOMID [Suspect]
     Route: 048
     Dates: start: 20080827, end: 20081101

REACTIONS (1)
  - NEOPLASM MALIGNANT [None]
